FAERS Safety Report 5223205-9 (Version None)
Quarter: 2007Q1

REPORT INFORMATION
  Report Type: 
  Country: None (occurrence: None)
  Receive Date: 20070125
  Receipt Date: 20070122
  Transmission Date: 20070707
  Serious: Yes (Hospitalization)
  Sender: FDA-Public Use
  Company Number: TAP2006Q02051

PATIENT
  Age: 74 Year
  Sex: Male

DRUGS (5)
  1. LUPRON DEPOT-3 [Suspect]
     Indication: PROSTATE CANCER
     Dosage: 22.5 MG, 1 IN 3 M
     Dates: start: 19970101
  2. TIAZAC [Concomitant]
  3. ATACAND [Concomitant]
  4. SIMVASTATIN [Concomitant]
  5. ASPIRIN [Concomitant]

REACTIONS (3)
  - AORTIC ANEURYSM [None]
  - POLLAKIURIA [None]
  - URINARY RETENTION [None]
